FAERS Safety Report 10072296 (Version 3)
Quarter: 2014Q3

REPORT INFORMATION
  Report Type: Spontaneous
  Country: DE (occurrence: DE)
  Receive Date: 20140411
  Receipt Date: 20140724
  Transmission Date: 20150326
  Serious: Yes (Hospitalization, Other)
  Sender: FDA-Public Use
  Company Number: DE-ASTRAZENECA-2014SE23837

PATIENT
  Age: 342 Month
  Sex: Male
  Weight: 81 kg

DRUGS (4)
  1. VANDETANIB. [Suspect]
     Active Substance: VANDETANIB
     Indication: MEDULLARY THYROID CANCER
     Route: 048
     Dates: start: 201107
  2. RAMIPRIL. [Concomitant]
     Active Substance: RAMIPRIL
     Indication: HYPERTENSION
     Route: 048
     Dates: start: 201308
  3. CALCITRIOL. [Concomitant]
     Active Substance: CALCITRIOL
     Indication: HYPOPARATHYROIDISM
     Route: 048
     Dates: start: 201301
  4. ZOMETA [Concomitant]
     Active Substance: ZOLEDRONIC ACID
     Indication: METASTASES TO BONE
     Dosage: 4 MG, EVERY TWO MONTHS
     Route: 042
     Dates: start: 201107

REACTIONS (6)
  - Meningitis bacterial [Recovered/Resolved]
  - Retinal vein occlusion [Unknown]
  - Myocarditis [Unknown]
  - Papillary muscle disorder [Unknown]
  - Angina pectoris [Unknown]
  - Pericarditis [Unknown]

NARRATIVE: CASE EVENT DATE: 201311
